FAERS Safety Report 5386101-2 (Version None)
Quarter: 2007Q3

REPORT INFORMATION
  Report Type: 
  Country: None (occurrence: None)
  Receive Date: 20070710
  Receipt Date: 20070704
  Transmission Date: 20080115
  Serious: Yes (Death, Life-Threatening, Hospitalization)
  Sender: FDA-Public Use
  Company Number: 056-C5013-07030385

PATIENT
  Age: 53 Year
  Sex: Male

DRUGS (9)
  1. CC-5013 (LENALIDOMIDE) (CAPSULES) [Suspect]
     Indication: MULTIPLE MYELOMA
     Dosage: 15 MG, DAILY, ORAL
     Route: 048
     Dates: start: 20061109, end: 20061127
  2. DEXAMETHASONE TAB [Suspect]
     Indication: MULTIPLE MYELOMA
     Dosage: 40 MG, 1 IN 1 D, PER ORAL
     Route: 048
  3. CLAVENTIN (CLAVENTIN) [Concomitant]
  4. AMIKACIN [Concomitant]
  5. ARANESP [Concomitant]
  6. IRON (IRON) [Concomitant]
  7. MIDAZOLAM HCL [Concomitant]
  8. SCOPOLAMINE [Concomitant]
  9. FERRIC [Concomitant]

REACTIONS (20)
  - ANAEMIA [None]
  - ANGINA PECTORIS [None]
  - ASTHENIA [None]
  - BLOOD PRESSURE DECREASED [None]
  - BRAIN NATRIURETIC PEPTIDE INCREASED [None]
  - BRONCHOPNEUMOPATHY [None]
  - CARDIAC DISORDER [None]
  - CEREBRAL HYPOPERFUSION [None]
  - COMA [None]
  - DISEASE RECURRENCE [None]
  - DYSPNOEA AT REST [None]
  - HYPERCALCAEMIA [None]
  - MULTIPLE MYELOMA [None]
  - NO THERAPEUTIC RESPONSE [None]
  - PAIN [None]
  - PLATELET COUNT DECREASED [None]
  - PRODUCTIVE COUGH [None]
  - REFUSAL OF TREATMENT BY PATIENT [None]
  - TROPONIN INCREASED [None]
  - WHITE BLOOD CELL COUNT DECREASED [None]
